FAERS Safety Report 18934088 (Version 1)
Quarter: 2021Q1

REPORT INFORMATION
  Report Type: Spontaneous
  Country: US (occurrence: US)
  Receive Date: 20210224
  Receipt Date: 20210224
  Transmission Date: 20210420
  Serious: Yes (Disabling, Other)
  Sender: FDA-Public Use
  Company Number: None

PATIENT
  Age: 35 Year
  Sex: Male
  Weight: 85.5 kg

DRUGS (1)
  1. DOTAREM [Suspect]
     Active Substance: GADOTERATE MEGLUMINE
     Indication: MAGNETIC RESONANCE IMAGING
     Dosage: ?          QUANTITY:1 INJECTION(S);?
     Route: 042
     Dates: start: 20201117, end: 20201117

REACTIONS (6)
  - Paraesthesia [None]
  - Hypoaesthesia [None]
  - Muscle twitching [None]
  - Neuropathy peripheral [None]
  - Contrast media toxicity [None]
  - Product complaint [None]

NARRATIVE: CASE EVENT DATE: 20201117
